FAERS Safety Report 5467007-7 (Version None)
Quarter: 2007Q3

REPORT INFORMATION
  Report Type: 
  Country: None (occurrence: None)
  Receive Date: 20070925
  Receipt Date: 20070919
  Transmission Date: 20080115
  Serious: Yes (Hospitalization)
  Sender: FDA-Public Use
  Company Number: A0683042A

PATIENT
  Age: 66 Year
  Sex: Male

DRUGS (6)
  1. AVODART [Suspect]
     Indication: BENIGN PROSTATIC HYPERPLASIA
     Dosage: .5MG PER DAY
     Route: 048
     Dates: start: 20060401
  2. ASPIRIN [Concomitant]
     Dates: end: 20070701
  3. CENTRUM [Concomitant]
  4. FISH OIL [Concomitant]
  5. SIMVASTATIN [Concomitant]
  6. NIACIN [Concomitant]

REACTIONS (2)
  - BLOOD URINE PRESENT [None]
  - PROSTATE CANCER [None]
